FAERS Safety Report 7849923-1 (Version None)
Quarter: 2011Q4

REPORT INFORMATION
  Report Type: 
  Country: None (occurrence: None)
  Receive Date: 20111021
  Receipt Date: 20111013
  Transmission Date: 20120403
  Serious: Yes (Congenital Anomaly, Other)
  Sender: FDA-Public Use
  Company Number: AUR-APL-2011-05464

PATIENT

DRUGS (5)
  1. LEVOTHYROXINE SODIUM [Concomitant]
  2. QVAR (BECLOMETASON DIPROPIONATE) [Concomitant]
  3. SALAZOPYRAN (SULFASALAZINE) [Concomitant]
  4. FLUOXETINE [Suspect]
     Indication: DEPRESSION
     Dosage: TRANSPLACENTAL
     Route: 064
     Dates: start: 20100128, end: 20110819
  5. FERROUS FUMARATE [Concomitant]

REACTIONS (2)
  - MATERNAL DRUGS AFFECTING FOETUS [None]
  - CLEFT PALATE [None]
